FAERS Safety Report 4531651-1 (Version None)
Quarter: 2004Q4

REPORT INFORMATION
  Report Type: 
  Country: None (occurrence: None)
  Receive Date: 20041220
  Receipt Date: 20041210
  Transmission Date: 20050328
  Serious: Yes (Hospitalization)
  Sender: FDA-Public Use
  Company Number: 200422192GDDC

PATIENT
  Age: 82 Year
  Sex: Female

DRUGS (6)
  1. FLODIL [Suspect]
     Indication: ESSENTIAL HYPERTENSION
  2. LASILIX [Suspect]
     Indication: ESSENTIAL HYPERTENSION
     Route: 048
     Dates: start: 20041001, end: 20041001
  3. ATACAND [Suspect]
     Indication: ESSENTIAL HYPERTENSION
     Route: 048
     Dates: start: 20041001, end: 20041001
  4. KREDEX [Suspect]
     Indication: ESSENTIAL HYPERTENSION
     Route: 048
     Dates: start: 20041001, end: 20041001
  5. CORVASAL [Concomitant]
     Route: 048
  6. NITRIDERM TTS [Concomitant]
     Route: 062

REACTIONS (5)
  - ASTHENIA [None]
  - LOSS OF CONSCIOUSNESS [None]
  - MALAISE [None]
  - ORTHOSTATIC HYPOTENSION [None]
  - VISION BLURRED [None]
